FAERS Safety Report 22618021 (Version 1)
Quarter: 2023Q2

REPORT INFORMATION
  Report Type: Spontaneous
  Country: US (occurrence: US)
  Receive Date: 20230620
  Receipt Date: 20230620
  Transmission Date: 20230722
  Serious: Yes (Hospitalization)
  Sender: FDA-Public Use
  Company Number: US-Merck Healthcare KGaA-9390248

PATIENT
  Sex: Female

DRUGS (2)
  1. REBIF [Suspect]
     Active Substance: INTERFERON BETA-1A
     Indication: Multiple sclerosis
     Route: 058
     Dates: start: 201712
  2. REBIF [Suspect]
     Active Substance: INTERFERON BETA-1A
     Dosage: 22 MCG/0.5 ML
     Route: 058
     Dates: start: 20220616

REACTIONS (1)
  - Multiple sclerosis relapse [Unknown]
